FAERS Safety Report 9728930 (Version 1)
Quarter: 2013Q4

REPORT INFORMATION
  Report Type: Spontaneous
  Country: US (occurrence: None)
  Receive Date: 20131204
  Receipt Date: 20131204
  Transmission Date: 20140711
  Serious: No
  Sender: FDA-Public Use
  Company Number: None

PATIENT
  Sex: 0

DRUGS (1)
  1. GLYCOPYRROLATE INJECTION [Suspect]
     Dates: start: 20131106, end: 20131114

REACTIONS (3)
  - Product compounding quality issue [None]
  - Product contamination microbial [None]
  - Bacillus test positive [None]
